FAERS Safety Report 5902910-2 (Version None)
Quarter: 2008Q3

REPORT INFORMATION
  Report Type: 
  Country: None (occurrence: None)
  Receive Date: 20080929
  Receipt Date: 20080929
  Transmission Date: 20090109
  Serious: Yes (Death)
  Sender: FDA-Public Use
  Company Number: None

PATIENT
  Age: 59 Year
  Sex: Male
  Weight: 87.5 kg

DRUGS (15)
  1. BEVACIZUMAB 7.5 [Suspect]
     Indication: GASTROOESOPHAGEAL CANCER
     Dosage: 7.5 EVERY 21 DAYS IV DAYS
     Dates: start: 20080513, end: 20080903
  2. DOCETAXEL [Suspect]
     Indication: GASTROOESOPHAGEAL CANCER
     Dosage: 70,  EVERY 21 DAYS IV DRIP
     Route: 041
     Dates: start: 20080513, end: 20080903
  3. OXALIPLATIN [Suspect]
     Indication: GASTROOESOPHAGEAL CANCER
     Dosage: 75 EVERY 21 DAYS IV DRIP
     Dates: start: 20080513, end: 20080903
  4. METFORMIN HCL [Concomitant]
  5. AVANDIC [Concomitant]
  6. LIPITOR [Concomitant]
  7. ZANTEC [Concomitant]
  8. LEYANQUIN [Concomitant]
  9. PREVACID [Concomitant]
  10. CIOPROFLOXACIN [Concomitant]
  11. OXYCODONE HCL [Concomitant]
  12. COLACE [Concomitant]
  13. FENTANGE [Concomitant]
  14. LIDODERM [Concomitant]
  15. LANTUS [Concomitant]

REACTIONS (3)
  - BRONCHOSCOPY ABNORMAL [None]
  - NEOPLASM MALIGNANT [None]
  - RESPIRATORY DISTRESS [None]
